FAERS Safety Report 15540365 (Version 1)
Quarter: 2018Q4

REPORT INFORMATION
  Report Type: Spontaneous
  Country: US (occurrence: US)
  Receive Date: 20181023
  Receipt Date: 20181023
  Transmission Date: 20190205
  Serious: No
  Sender: FDA-Public Use
  Company Number: US-PFIZER INC-2018420841

PATIENT
  Age: 72 Year
  Sex: Female
  Weight: 60.33 kg

DRUGS (4)
  1. XGEVA [Concomitant]
     Active Substance: DENOSUMAB
     Indication: BONE LOSS
     Dosage: UNK
     Dates: start: 201709
  2. IBRANCE [Suspect]
     Active Substance: PALBOCICLIB
     Indication: BONE CANCER
  3. IBRANCE [Suspect]
     Active Substance: PALBOCICLIB
     Indication: BREAST CANCER FEMALE
     Dosage: 125 MG, CYCLIC (ONCE A DAY BY MOUTH FOR THREE WEEKS)
     Route: 048
     Dates: start: 201712
  4. FASLODEX [Concomitant]
     Active Substance: FULVESTRANT
     Indication: ANTIOESTROGEN THERAPY
     Dosage: UNK
     Dates: start: 201806

REACTIONS (3)
  - Body height decreased [Unknown]
  - Anaemia [Unknown]
  - Alopecia [Not Recovered/Not Resolved]

NARRATIVE: CASE EVENT DATE: 201803
